FAERS Safety Report 10081898 (Version 6)
Quarter: 2014Q3

REPORT INFORMATION
  Report Type: Spontaneous
  Country: US (occurrence: US)
  Receive Date: 20140416
  Receipt Date: 20140812
  Transmission Date: 20150326
  Serious: Yes (Hospitalization)
  Sender: FDA-Public Use
  Company Number: US-GLAXOSMITHKLINE-A1068692A

PATIENT
  Age: 70 Year
  Sex: Female

DRUGS (23)
  1. DOCUSATE [Concomitant]
     Active Substance: DOCUSATE
  2. IPRATROPIUM BROMIDE + SALBUTAMOL [Concomitant]
  3. MUCINEX [Concomitant]
     Active Substance: GUAIFENESIN
  4. ISOSORBIDE [Concomitant]
     Active Substance: ISOSORBIDE
  5. FUROSEMIDE. [Concomitant]
     Active Substance: FUROSEMIDE
  6. SPIRIVA [Suspect]
     Active Substance: TIOTROPIUM BROMIDE MONOHYDRATE
     Indication: PRODUCT USED FOR UNKNOWN INDICATION
     Route: 065
     Dates: start: 2007
  7. ALBUTEROL NEBULIZER [Concomitant]
     Active Substance: ALBUTEROL
  8. OYSTER SHELL CALCIUM + VITAMIN D [Concomitant]
     Active Substance: CALCIUM\VITAMIN D
  9. KDUR [Concomitant]
  10. ADVAIR HFA [Suspect]
     Active Substance: FLUTICASONE PROPIONATE\SALMETEROL XINAFOATE
     Indication: PNEUMONIA
     Dosage: 1PUFF IN THE MORNING
     Route: 055
     Dates: start: 2000
  11. ALBUTEROL INHALER [Concomitant]
     Active Substance: ALBUTEROL
  12. THEOPHYLLINE ANHYDROUS. [Concomitant]
     Active Substance: THEOPHYLLINE ANHYDROUS
  13. OXYGEN. [Concomitant]
     Active Substance: OXYGEN
  14. CARVEDILOL. [Concomitant]
     Active Substance: CARVEDILOL
  15. FIBER LAXATIVE [Concomitant]
     Active Substance: CALCIUM POLYCARBOPHIL
  16. FLUTICASONE NASAL SPRAY [Concomitant]
     Active Substance: FLUTICASONE\FLUTICASONE PROPIONATE
  17. OMEPRAZOLE. [Concomitant]
     Active Substance: OMEPRAZOLE
  18. COUMADIN [Concomitant]
     Active Substance: WARFARIN SODIUM
  19. DIGOXIN. [Concomitant]
     Active Substance: DIGOXIN
  20. SALMETEROL [Concomitant]
     Active Substance: SALMETEROL
  21. NEBULIZER [Concomitant]
     Active Substance: UNSPECIFIED INGREDIENT
  22. LACTULOSE. [Concomitant]
     Active Substance: LACTULOSE
  23. LORTAB [Concomitant]
     Active Substance: ACETAMINOPHEN\HYDROCODONE BITARTRATE

REACTIONS (9)
  - Lung neoplasm malignant [Unknown]
  - Inappropriate schedule of drug administration [Unknown]
  - Pneumonectomy [Recovered/Resolved]
  - Transient ischaemic attack [Unknown]
  - Myocardial infarction [Recovered/Resolved]
  - Muscular weakness [Unknown]
  - Pneumonia [Recovered/Resolved]
  - Underdose [Unknown]
  - Apparent death [Recovered/Resolved]

NARRATIVE: CASE EVENT DATE: 2008
